FAERS Safety Report 23088427 (Version 1)
Quarter: 2023Q4

REPORT INFORMATION
  Report Type: Report from Study
  Country: US (occurrence: US)
  Receive Date: 20231020
  Receipt Date: 20231020
  Transmission Date: 20240110
  Serious: Yes (Hospitalization, Other)
  Sender: FDA-Public Use
  Company Number: US-BAXTER-2023BAX033384

PATIENT
  Age: 45 Year
  Sex: Female

DRUGS (7)
  1. CYCLOPHOSPHAMIDE [Suspect]
     Active Substance: CYCLOPHOSPHAMIDE
     Indication: Neoplasm malignant
     Dosage: 4800 MG (60MG/KG), DAY 7, 6
     Route: 042
     Dates: start: 20230721, end: 20230722
  2. ALDESLEUKIN [Suspect]
     Active Substance: ALDESLEUKIN
     Indication: Neoplasm malignant
     Dosage: UNK, 48 X 10^6 IU, DAY 1, DAY 2, DAY 3, EVERY 8 HOURS
     Route: 042
     Dates: start: 20230729, end: 20230731
  3. PEMBROLIZUMAB [Suspect]
     Active Substance: PEMBROLIZUMAB
     Indication: Neoplasm malignant
     Dosage: 200 MG, DAY 14, DAY 35
     Route: 042
     Dates: start: 20230821, end: 20230911
  4. FLUDARABINE [Suspect]
     Active Substance: FLUDARABINE PHOSPHATE
     Indication: Neoplasm malignant
     Dosage: 47.5 MG/M2 (25MG/M2), DAY 7,6,5,4,3
     Route: 042
     Dates: start: 20230721, end: 20230725
  5. ALBUTEROL [Concomitant]
     Active Substance: ALBUTEROL
     Indication: Wheezing
     Dosage: UNK, 2 PUFF, AS NECESSARY
     Route: 065
     Dates: start: 20150225
  6. HYDRODIURIL [Concomitant]
     Active Substance: HYDROCHLOROTHIAZIDE
     Indication: Hypertension
     Dosage: 25 MG, AS NECESSARY
     Route: 065
     Dates: start: 20160614
  7. IBUPROFEN [Concomitant]
     Active Substance: IBUPROFEN
     Indication: Pain
     Dosage: 800 MG, EVERY 8 HOURS
     Route: 065
     Dates: start: 20170201

REACTIONS (1)
  - Haematoma [Not Recovered/Not Resolved]

NARRATIVE: CASE EVENT DATE: 20230928
